FAERS Safety Report 9507523 (Version 2)
Quarter: 2013Q4

REPORT INFORMATION
  Report Type: Spontaneous
  Country: US (occurrence: US)
  Receive Date: 20130909
  Receipt Date: 20131023
  Transmission Date: 20140711
  Serious: Yes (Other)
  Sender: FDA-Public Use
  Company Number: US-ASTELLAS-2013US009412

PATIENT
  Sex: Female
  Weight: 55 kg

DRUGS (1)
  1. MYRBETRIQ [Suspect]
     Indication: HYPERTONIC BLADDER
     Dosage: 50 MG, UID/QD
     Route: 048
     Dates: start: 20130607, end: 20130825

REACTIONS (9)
  - Intentional drug misuse [Unknown]
  - Drug ineffective [Unknown]
  - Hypopnoea [Unknown]
  - Chest pain [Unknown]
  - Dyspnoea [Not Recovered/Not Resolved]
  - Panic attack [Not Recovered/Not Resolved]
  - Palpitations [Recovering/Resolving]
  - Heart rate increased [Unknown]
  - Condition aggravated [Unknown]
